FAERS Safety Report 8445170-3 (Version None)
Quarter: 2012Q2

REPORT INFORMATION
  Report Type: 
  Country: None (occurrence: None)
  Receive Date: 20120618
  Receipt Date: 20120606
  Transmission Date: 20120825
  Serious: Yes (Hospitalization, Other)
  Sender: FDA-Public Use
  Company Number: US-ROCHE-788834

PATIENT
  Sex: Male
  Weight: 77.18 kg

DRUGS (5)
  1. ACCUTANE [Suspect]
     Indication: ACNE
     Route: 048
     Dates: start: 19910101, end: 19920101
  2. ACCUTANE [Suspect]
     Route: 065
     Dates: start: 19940101, end: 19950101
  3. ACCUTANE [Suspect]
     Route: 065
     Dates: start: 20080101, end: 20090101
  4. ACCUTANE [Suspect]
     Route: 065
     Dates: start: 20000101, end: 20010101
  5. CLARITIN [Concomitant]

REACTIONS (4)
  - INFLAMMATORY BOWEL DISEASE [None]
  - COLITIS ULCERATIVE [None]
  - EMOTIONAL DISTRESS [None]
  - INTESTINAL OBSTRUCTION [None]
